FAERS Safety Report 12517911 (Version 3)
Quarter: 2016Q3

REPORT INFORMATION
  Report Type: Spontaneous
  Country: RO (occurrence: RO)
  Receive Date: 20160630
  Receipt Date: 20160902
  Transmission Date: 20161109
  Serious: Yes (Hospitalization)
  Sender: FDA-Public Use
  Company Number: RO-ROCHE-1784920

PATIENT
  Sex: Female
  Weight: 67 kg

DRUGS (4)
  1. ASPIRIN. [Concomitant]
     Active Substance: ASPIRIN
  2. ROACTEMRA [Suspect]
     Active Substance: TOCILIZUMAB
     Route: 042
     Dates: end: 20160707
  3. ROACTEMRA [Suspect]
     Active Substance: TOCILIZUMAB
     Indication: RHEUMATOID ARTHRITIS
     Route: 042
     Dates: start: 20160505, end: 20160627
  4. ANTINEVRALGIC [Concomitant]
     Active Substance: ASPIRIN\CAFFEINE\PHENACETIN

REACTIONS (6)
  - Pruritus generalised [Recovering/Resolving]
  - Peripheral swelling [Recovering/Resolving]
  - Swollen tongue [Recovering/Resolving]
  - Generalised erythema [Recovering/Resolving]
  - Skin ulcer [Recovering/Resolving]
  - Headache [Recovering/Resolving]
